FAERS Safety Report 6823879-2 (Version None)
Quarter: 2010Q3

REPORT INFORMATION
  Report Type: 
  Country: None (occurrence: None)
  Receive Date: 20100708
  Receipt Date: 20060918
  Transmission Date: 20110219
  Serious: No
  Sender: FDA-Public Use
  Company Number: US-PFIZER INC-2006113394

PATIENT
  Sex: Female
  Weight: 83.01 kg

DRUGS (4)
  1. CHANTIX [Suspect]
     Indication: SMOKING CESSATION THERAPY
     Dates: start: 20060101
  2. MONTELUKAST SODIUM [Concomitant]
     Indication: SMOKING CESSATION THERAPY
  3. NEXIUM [Concomitant]
  4. ALL OTHER THERAPEUTIC PRODUCTS [Concomitant]

REACTIONS (4)
  - NICOTINE DEPENDENCE [None]
  - PARAESTHESIA [None]
  - PASSIVE SMOKING [None]
  - TINNITUS [None]
